FAERS Safety Report 25331448 (Version 3)
Quarter: 2025Q2

REPORT INFORMATION
  Report Type: Spontaneous
  Country: FR (occurrence: FR)
  Receive Date: 20250519
  Receipt Date: 20250527
  Transmission Date: 20250716
  Serious: Yes (Death, Other)
  Sender: MERCK SHARP & DOHME LLC
  Company Number: FR-BASILEA PHARMACEUTICA DEUTSCHLAND GMBH-FR-BAS-25-00654

PATIENT
  Sex: Male

DRUGS (4)
  1. CASPOFUNGIN ACETATE [Suspect]
     Active Substance: CASPOFUNGIN ACETATE
     Indication: Aspergillus infection
  2. POLARAMINE ANTIHISTAMINIC [Concomitant]
  3. VORICONAZOLE [Suspect]
     Active Substance: VORICONAZOLE
     Indication: Aspergillus infection
  4. CRESEMBA [Suspect]
     Active Substance: ISAVUCONAZONIUM SULFATE
     Indication: Aspergillus infection

REACTIONS (4)
  - Aspergillus infection [Fatal]
  - Drug ineffective [Fatal]
  - Drug intolerance [Unknown]
  - Infusion related reaction [Unknown]
